FAERS Safety Report 10332795 (Version 1)
Quarter: 2014Q3

REPORT INFORMATION
  Report Type: Spontaneous
  Country: AR (occurrence: AR)
  Receive Date: 20140722
  Receipt Date: 20140722
  Transmission Date: 20150326
  Serious: Yes (Other)
  Sender: FDA-Public Use
  Company Number: AR-MYLANLABS-2014S1016758

PATIENT
  Age: 79 Year
  Sex: Female

DRUGS (3)
  1. ATENOLOL. [Interacting]
     Active Substance: ATENOLOL
     Route: 065
  2. DRONEDARONE [Suspect]
     Active Substance: DRONEDARONE
     Route: 065
  3. CARVEDILOL. [Interacting]
     Active Substance: CARVEDILOL
     Route: 065

REACTIONS (7)
  - Sinus bradycardia [Unknown]
  - Dyspnoea [Unknown]
  - Atrial fibrillation [Unknown]
  - Oedema peripheral [Unknown]
  - Atrioventricular block first degree [Unknown]
  - Muscle spasms [Unknown]
  - Cardiac failure congestive [Unknown]
